FAERS Safety Report 22166332 (Version 3)
Quarter: 2023Q2

REPORT INFORMATION
  Report Type: Spontaneous
  Country: CA (occurrence: CA)
  Receive Date: 20230403
  Receipt Date: 20230411
  Transmission Date: 20230722
  Serious: Yes (Other)
  Sender: FDA-Public Use
  Company Number: CA-PFIZER INC-202300138120

PATIENT
  Age: 73 Year
  Sex: Female

DRUGS (18)
  1. ATIVAN [Suspect]
     Active Substance: LORAZEPAM
     Indication: Anxiety
     Dosage: 0.5 MG (FOR 4 YEARS,SINCE 2019. SOMETIMES I TAKE IT EVERYDAY AND SOMETIMES I TAKE IT HERE AND THERE)
     Route: 060
     Dates: start: 2019
  2. ATIVAN [Suspect]
     Active Substance: LORAZEPAM
     Dosage: 0.5 MG (TAKEN IT ON DIFFERENT OCCASION)
     Route: 060
     Dates: start: 202301
  3. ATIVAN [Suspect]
     Active Substance: LORAZEPAM
     Dosage: 0.5 MG (TOOK IT ABOUT 15TIMES)
     Route: 060
     Dates: start: 202302
  4. ATIVAN [Suspect]
     Active Substance: LORAZEPAM
     Dosage: 0.5 MG
     Route: 060
     Dates: start: 20230305
  5. ATIVAN [Suspect]
     Active Substance: LORAZEPAM
     Dosage: 0.5 MG
     Route: 060
     Dates: start: 20230306
  6. ATIVAN [Suspect]
     Active Substance: LORAZEPAM
     Dosage: 0.5 MG
     Route: 060
     Dates: start: 20230316
  7. ATIVAN [Suspect]
     Active Substance: LORAZEPAM
     Dosage: 0.5 MG
     Route: 060
     Dates: start: 20230317
  8. ATIVAN [Suspect]
     Active Substance: LORAZEPAM
     Dosage: 0.5 MG
     Route: 060
     Dates: start: 20230319
  9. ATIVAN [Suspect]
     Active Substance: LORAZEPAM
     Dosage: 0.5 MG
     Route: 060
     Dates: start: 20230324
  10. ATIVAN [Suspect]
     Active Substance: LORAZEPAM
     Dosage: 0.5 MG
     Route: 060
     Dates: start: 20230325
  11. ATIVAN [Suspect]
     Active Substance: LORAZEPAM
     Dosage: 0.5 MG
     Route: 060
     Dates: start: 20230329
  12. ATIVAN [Suspect]
     Active Substance: LORAZEPAM
     Dosage: 0.5 MG
     Route: 060
     Dates: start: 20230330
  13. ATIVAN [Suspect]
     Active Substance: LORAZEPAM
     Dosage: 0.5 MG
     Route: 060
     Dates: start: 20230331
  14. ATIVAN [Suspect]
     Active Substance: LORAZEPAM
     Dosage: 0.5 MG
     Route: 060
     Dates: start: 20230401
  15. ATIVAN [Suspect]
     Active Substance: LORAZEPAM
     Dosage: 0.5 MG
     Route: 060
     Dates: start: 20230402
  16. ATIVAN [Suspect]
     Active Substance: LORAZEPAM
     Dosage: 0.5 MG
     Route: 060
     Dates: start: 20230403
  17. ATIVAN [Suspect]
     Active Substance: LORAZEPAM
     Dosage: 0.5 MG
     Route: 060
     Dates: start: 20230404
  18. ATIVAN [Suspect]
     Active Substance: LORAZEPAM
     Dosage: 0.5 MG
     Route: 060
     Dates: start: 20230405

REACTIONS (16)
  - Concussion [Unknown]
  - Withdrawal syndrome [Unknown]
  - Nervousness [Unknown]
  - Dizziness [Unknown]
  - Headache [Unknown]
  - Sensory disturbance [Unknown]
  - Hypoaesthesia [Unknown]
  - Asthenia [Unknown]
  - Pain [Unknown]
  - Pain in extremity [Unknown]
  - Insomnia [Unknown]
  - Abdominal discomfort [Unknown]
  - Tremor [Unknown]
  - Eye disorder [Unknown]
  - Somnolence [Unknown]
  - Fear of disease [Unknown]

NARRATIVE: CASE EVENT DATE: 20230301
